FAERS Safety Report 13873995 (Version 1)
Quarter: 2017Q3

REPORT INFORMATION
  Report Type: Spontaneous
  Country: RO (occurrence: RO)
  Receive Date: 20170816
  Receipt Date: 20170816
  Transmission Date: 20171127
  Serious: Yes (Life-Threatening, Hospitalization, Other)
  Sender: FDA-Public Use
  Company Number: RO-GILEAD-2017-0288303

PATIENT
  Age: 59 Year
  Sex: Female

DRUGS (7)
  1. HARVONI [Suspect]
     Active Substance: LEDIPASVIR\SOFOSBUVIR
     Indication: CHRONIC HEPATITIS C
     Dosage: UNK
     Route: 048
     Dates: start: 20170621, end: 20170704
  2. SILYBIN [Concomitant]
     Dosage: 1000 MG, QD
     Route: 065
  3. INSULIN [Concomitant]
     Active Substance: INSULIN NOS
     Route: 058
  4. URSOFALK [Concomitant]
     Active Substance: URSODIOL
     Dosage: 2 DF, BID
     Route: 065
  5. MALTOFER                           /00023548/ [Concomitant]
     Dosage: 1 DF, QD
     Route: 065
  6. NORMIX [Concomitant]
     Active Substance: RIFAXIMIN
     Dosage: 200 MG, TID
     Route: 065
  7. DIUREX                             /00581101/ [Concomitant]
     Dosage: 1 DF, QD
     Route: 065

REACTIONS (1)
  - Hepatic encephalopathy [Recovered/Resolved]

NARRATIVE: CASE EVENT DATE: 20170704
